FAERS Safety Report 5841596-2 (Version None)
Quarter: 2008Q3

REPORT INFORMATION
  Report Type: 
  Country: None (occurrence: None)
  Receive Date: 20080731
  Receipt Date: 20080501
  Transmission Date: 20090109
  Serious: No
  Sender: FDA-Public Use
  Company Number: US200802004933

PATIENT
  Age: 53 Year
  Sex: Female

DRUGS (5)
  1. BYETTA [Suspect]
     Indication: INSULIN-REQUIRING TYPE 2 DIABETES MELLITUS
     Dosage: 5 UG, 2/D, SUBCUTANEOUS : 10 UG, 2/D, SUBCUTANEOUS
     Route: 058
     Dates: start: 20070101, end: 20070101
  2. BYETTA [Suspect]
     Indication: INSULIN-REQUIRING TYPE 2 DIABETES MELLITUS
     Dosage: 5 UG, 2/D, SUBCUTANEOUS : 10 UG, 2/D, SUBCUTANEOUS
     Route: 058
     Dates: start: 20070101
  3. BYETTA [Suspect]
     Dosage: 10 UG, 2/D, SUBCUTANEOUS
     Route: 058
  4. LEVEMIR [Concomitant]
  5. LANTUS [Concomitant]

REACTIONS (5)
  - BLOOD GLUCOSE INCREASED [None]
  - ERYTHEMA [None]
  - HYPERSENSITIVITY [None]
  - INJECTION SITE HAEMORRHAGE [None]
  - PRURITUS [None]
